FAERS Safety Report 24660664 (Version 1)
Quarter: 2024Q4

REPORT INFORMATION
  Report Type: Spontaneous
  Country: US (occurrence: US)
  Receive Date: 20241125
  Receipt Date: 20241125
  Transmission Date: 20250115
  Serious: No
  Sender: AVADEL CNS PHARMACEUTICALS, LLC
  Company Number: US-AVADEL CNS PHARMACEUTICALS, LLC-2024AVA01455

PATIENT
  Sex: Female

DRUGS (6)
  1. LUMRYZ [Suspect]
     Active Substance: SODIUM OXYBATE
     Indication: Narcolepsy
     Dosage: 9 G, ONCE NIGHTLY
     Dates: start: 202406
  2. IRON [Concomitant]
     Active Substance: IRON
  3. IBUPROFEN [Concomitant]
     Active Substance: IBUPROFEN
  4. VITAMINS [Concomitant]
     Active Substance: VITAMINS
     Dosage: MULTIVITAMIN 50 PLUS
  5. COBAMAMIDE [Concomitant]
     Active Substance: COBAMAMIDE
  6. VYVANSE [Concomitant]
     Active Substance: LISDEXAMFETAMINE DIMESYLATE

REACTIONS (1)
  - Alopecia [Not Recovered/Not Resolved]

NARRATIVE: CASE EVENT DATE: 20240101
